FAERS Safety Report 6450841-4 (Version None)
Quarter: 2009Q4

REPORT INFORMATION
  Report Type: 
  Country: None (occurrence: None)
  Receive Date: 20091123
  Receipt Date: 20091112
  Transmission Date: 20100525
  Serious: Yes (Hospitalization)
  Sender: FDA-Public Use
  Company Number: US-ASTRAZENECA-2009SE26220

PATIENT
  Age: 22495 Day
  Sex: Female
  Weight: 127 kg

DRUGS (10)
  1. NEXIUM [Suspect]
     Route: 048
  2. LEXAPRO [Concomitant]
  3. AVESACARE [Concomitant]
  4. CELEXA [Concomitant]
     Indication: ANTIDEPRESSANT THERAPY
  5. DITROPAN [Concomitant]
  6. HYDROCHLOROT [Concomitant]
  7. LESAPRILL [Concomitant]
     Indication: BLOOD PRESSURE
  8. OMEPRAZOLE [Concomitant]
     Indication: DYSPEPSIA
  9. ULTRAM [Concomitant]
     Indication: GOUT
  10. ZANEX [Concomitant]
     Indication: DEPRESSION

REACTIONS (2)
  - DRUG DOSE OMISSION [None]
  - GASTRIC ULCER HAEMORRHAGE [None]
